FAERS Safety Report 7518614-9 (Version None)
Quarter: 2011Q2

REPORT INFORMATION
  Report Type: 
  Country: None (occurrence: None)
  Receive Date: 20110602
  Receipt Date: 20110521
  Transmission Date: 20111010
  Serious: Yes (Hospitalization, Other)
  Sender: FDA-Public Use
  Company Number: US-MYLANLABS-2011S1010760

PATIENT
  Age: 48 Year
  Sex: Female
  Weight: 59.88 kg

DRUGS (6)
  1. MIDODRINE HYDROCHLORIDE [Concomitant]
     Indication: HYPOTENSION
     Route: 048
     Dates: start: 20081001, end: 20110505
  2. LEVETIRACETAM [Suspect]
     Route: 048
  3. LEVETIRACETAM [Suspect]
     Route: 048
     Dates: end: 20110505
  4. LEVETIRACETAM [Suspect]
     Route: 048
     Dates: end: 20110505
  5. FIORICET [Concomitant]
     Indication: MIGRAINE
     Dosage: 50MG/325MG/40MG
     Route: 048
     Dates: start: 20100101, end: 20110505
  6. LEVETIRACETAM [Suspect]
     Indication: CONVULSION
     Route: 048
     Dates: start: 20101101

REACTIONS (7)
  - DRUG INEFFECTIVE FOR UNAPPROVED INDICATION [None]
  - GRAND MAL CONVULSION [None]
  - ELECTROENCEPHALOGRAM ABNORMAL [None]
  - INJURY [None]
  - CONVULSION [None]
  - CONCUSSION [None]
  - LOSS OF CONSCIOUSNESS [None]
